FAERS Safety Report 22219541 (Version 5)
Quarter: 2023Q2

REPORT INFORMATION
  Report Type: Report from Study
  Country: US (occurrence: None)
  Receive Date: 20230417
  Receipt Date: 20230608
  Transmission Date: 20230722
  Serious: Yes (Hospitalization, Other)
  Sender: FDA-Public Use
  Company Number: US-ROCHE-2911992

PATIENT
  Age: 61 Year
  Sex: Male
  Weight: 95 kg

DRUGS (17)
  1. RANIBIZUMAB [Suspect]
     Active Substance: RANIBIZUMAB
     Indication: Diabetic retinopathy
     Dosage: FIRST DRUG ADMINISTERED OF 10 MG/ML, DOSE LAST STUDY DRUG ADMIN PRIOR AE 100 MG/ML, DOSE LAST STUDY
     Route: 050
     Dates: start: 20201116
  2. RANIBIZUMAB [Suspect]
     Active Substance: RANIBIZUMAB
  3. RANIBIZUMAB [Suspect]
     Active Substance: RANIBIZUMAB
  4. RANIBIZUMAB [Suspect]
     Active Substance: RANIBIZUMAB
  5. RANIBIZUMAB [Suspect]
     Active Substance: RANIBIZUMAB
  6. FARXIGA [Concomitant]
     Active Substance: DAPAGLIFLOZIN PROPANEDIOL
     Indication: Diabetes mellitus
     Route: 048
     Dates: start: 2017
  7. AMLODIPINE [Concomitant]
     Active Substance: AMLODIPINE BESYLATE
     Indication: Hypertension
     Dosage: THERAPY STOP DATE: 30/AUG/2022
     Route: 048
     Dates: start: 2010, end: 20210830
  8. ATORVASTATIN [Concomitant]
     Active Substance: ATORVASTATIN
     Indication: Hypertension
     Route: 048
     Dates: start: 2010
  9. HUMULIN NOS [Concomitant]
     Active Substance: INSULIN HUMAN
     Indication: Diabetes mellitus
     Dosage: 500 U
     Route: 058
     Dates: start: 2014, end: 20210827
  10. FOLIC ACID [Concomitant]
     Active Substance: FOLIC ACID
     Indication: Arthralgia
     Route: 048
     Dates: start: 20210327
  11. METHYLPREDNISOLONE [Concomitant]
     Active Substance: METHYLPREDNISOLONE
     Indication: Arthralgia
     Route: 048
     Dates: start: 20210327
  12. POLYTRIM [Concomitant]
     Active Substance: POLYMYXIN B SULFATE\TRIMETHOPRIM SULFATE
     Route: 047
     Dates: start: 20210817, end: 20210820
  13. ASPIRIN [Concomitant]
     Active Substance: ASPIRIN
     Indication: Prophylaxis
     Route: 048
     Dates: start: 20210903
  14. RANIBIZUMAB [Concomitant]
     Active Substance: RANIBIZUMAB
     Dosage: FELLOW EYE RANIBIZUMAB?START DATE OF MOST RECENT DOSE OF STUDY DRUG PRIOR TO AE AND SAE: 09/DEC/2020
     Route: 050
     Dates: start: 20201116
  15. HUMULIN N [Concomitant]
     Active Substance: INSULIN HUMAN
     Indication: Diabetes mellitus
     Route: 058
     Dates: start: 20210827
  16. NITROGLYCERIN [Concomitant]
     Active Substance: NITROGLYCERIN
     Indication: Angina pectoris
     Route: 048
     Dates: start: 20210827
  17. NEBIVOLOL [Concomitant]
     Active Substance: NEBIVOLOL
     Indication: Hypertension
     Route: 048
     Dates: start: 202212

REACTIONS (2)
  - Hypertension [Recovered/Resolved]
  - Device issue [Unknown]

NARRATIVE: CASE EVENT DATE: 20210827
